FAERS Safety Report 17356545 (Version 1)
Quarter: 2020Q1

REPORT INFORMATION
  Report Type: Other
  Country: US (occurrence: US)
  Receive Date: 20200131
  Receipt Date: 20200131
  Transmission Date: 20200409
  Serious: No
  Sender: FDA-Public Use
  Company Number: US-LEADIANT BIOSCIENCES INC-2019STPI000566

PATIENT

DRUGS (6)
  1. REVCOVI [Suspect]
     Active Substance: ELAPEGADEMASE-LVLR
     Indication: COMBINED IMMUNODEFICIENCY
     Dosage: UNK EVERY TUESDAY AND THURSDAY
     Route: 030
     Dates: start: 20190320
  2. ALEVE [Concomitant]
     Active Substance: NAPROXEN SODIUM
  3. ARMOUR THYROID [Concomitant]
     Active Substance: THYROID, PORCINE
     Dosage: UNK
     Dates: start: 20180322
  4. BENADRYL [Concomitant]
     Active Substance: DIPHENHYDRAMINE HYDROCHLORIDE
     Dosage: 60 MILLIGRAM
     Dates: start: 20180322
  5. CALCIUM [Concomitant]
     Active Substance: CALCIUM
     Dosage: UNK
     Dates: start: 20170929
  6. ACYCLOVIR [ACICLOVIR] [Concomitant]
     Active Substance: ACYCLOVIR
     Dosage: UNK
     Dates: start: 20190319

REACTIONS (2)
  - Weight increased [Not Recovered/Not Resolved]
  - Herpes zoster [Unknown]

NARRATIVE: CASE EVENT DATE: 2018
